FAERS Safety Report 11982766 (Version 1)
Quarter: 2016Q1

REPORT INFORMATION
  Report Type: Other
  Country: IT (occurrence: IT)
  Receive Date: 20160201
  Receipt Date: 20160201
  Transmission Date: 20160526
  Serious: Yes (Hospitalization)
  Sender: FDA-Public Use
  Company Number: IT-PURDUE PHARMA-CAN-2016-0006424

PATIENT
  Age: 23 Year
  Sex: Male

DRUGS (4)
  1. NON-PMN METHYLPHENIDATE HCL [Suspect]
     Active Substance: METHYLPHENIDATE HYDROCHLORIDE
     Indication: DRUG ABUSE
     Dosage: 120 MG, DAILY
     Route: 065
  2. NON-PMN METHYLPHENIDATE HCL [Suspect]
     Active Substance: METHYLPHENIDATE HYDROCHLORIDE
     Dosage: 30 MG, DAILY
     Route: 065
  3. NON-PMN METHYLPHENIDATE HCL [Suspect]
     Active Substance: METHYLPHENIDATE HYDROCHLORIDE
     Indication: ATTENTION DEFICIT/HYPERACTIVITY DISORDER
     Dosage: UNK
     Route: 065
  4. CANNABIS [Suspect]
     Active Substance: CANNABIS SATIVA SUBSP. INDICA TOP
     Indication: PRODUCT USED FOR UNKNOWN INDICATION
     Dosage: 5 UNIT, DAILY
     Route: 065

REACTIONS (4)
  - Mania [Recovered/Resolved]
  - Substance abuse [Unknown]
  - Cognitive disorder [Recovered/Resolved]
  - Substance-induced mood disorder [Recovered/Resolved]
